FAERS Safety Report 25821942 (Version 1)
Quarter: 2025Q3

REPORT INFORMATION
  Report Type: Spontaneous
  Country: ID (occurrence: ID)
  Receive Date: 20250919
  Receipt Date: 20250919
  Transmission Date: 20251021
  Serious: Yes (Death, Hospitalization)
  Sender: NOVITIUM PHARMA
  Company Number: ID-NOVITIUMPHARMA-2025IDNVP02370

PATIENT
  Age: 31 Year
  Sex: Female

DRUGS (10)
  1. BISOPROLOL FUMARATE [Suspect]
     Active Substance: BISOPROLOL FUMARATE
     Indication: Pulmonary hypertension
  2. DIGOXIN [Suspect]
     Active Substance: DIGOXIN
     Indication: Pulmonary hypertension
  3. DIGOXIN [Suspect]
     Active Substance: DIGOXIN
     Indication: Right ventricular failure
  4. SILDENAFIL [Concomitant]
     Active Substance: SILDENAFIL
  5. SPIRONOLACTONE [Concomitant]
     Active Substance: SPIRONOLACTONE
     Indication: Pulmonary hypertension
  6. FUROSEMIDE [Concomitant]
     Active Substance: FUROSEMIDE
     Indication: Pulmonary hypertension
  7. WARFARIN [Concomitant]
     Active Substance: WARFARIN
     Indication: Product used for unknown indication
  8. DOBUTAMINE [Concomitant]
     Active Substance: DOBUTAMINE HYDROCHLORIDE
     Route: 041
  9. ILOPROST [Concomitant]
     Active Substance: ILOPROST
  10. CODEINE [Concomitant]
     Active Substance: CODEINE

REACTIONS (1)
  - Drug ineffective [Fatal]
